FAERS Safety Report 8897728 (Version 1)
Quarter: 2012Q4

REPORT INFORMATION
  Report Type: 
  Country: US (occurrence: US)
  Receive Date: 20121108
  Receipt Date: 20121108
  Transmission Date: 20130627
  Serious: No
  Sender: FDA-Public Use
  Company Number: US-AMGEN-USASP2012029861

PATIENT
  Age: 66 Year
  Sex: Male

DRUGS (3)
  1. ENBREL [Suspect]
     Indication: RHEUMATOID ARTHRITIS
     Dosage: 50 mg, 2 times/wk
     Dates: start: 20110824, end: 20110824
  2. ENBREL [Suspect]
     Indication: PSORIASIS
  3. TREXALL [Concomitant]
     Dosage: 1 mg, qwk
     Dates: start: 201101

REACTIONS (12)
  - Fatigue [Not Recovered/Not Resolved]
  - Lethargy [Not Recovered/Not Resolved]
  - Throat tightness [Not Recovered/Not Resolved]
  - Musculoskeletal discomfort [Not Recovered/Not Resolved]
  - Weight decreased [Recovered/Resolved]
  - Malaise [Unknown]
  - Decreased appetite [Recovered/Resolved]
  - Myalgia [Recovered/Resolved]
  - Headache [Recovered/Resolved]
  - Incorrect storage of drug [Unknown]
  - Influenza [Recovered/Resolved]
  - Pyrexia [Recovered/Resolved]
